FAERS Safety Report 7703415-9 (Version None)
Quarter: 2011Q3

REPORT INFORMATION
  Report Type: 
  Country: None (occurrence: None)
  Receive Date: 20110823
  Receipt Date: 20110823
  Transmission Date: 20111222
  Serious: Yes (Other)
  Sender: FDA-Public Use
  Company Number: None

PATIENT
  Age: 72 Year
  Sex: Female
  Weight: 56.699 kg

DRUGS (1)
  1. PRADAXA [Suspect]
     Indication: ATRIAL FIBRILLATION
     Dosage: 150MG
     Route: 048
     Dates: start: 20110811, end: 20110822

REACTIONS (6)
  - COUGH [None]
  - DYSPEPSIA [None]
  - INSOMNIA [None]
  - ANAL PRURITUS [None]
  - VULVOVAGINAL PRURITUS [None]
  - WHEEZING [None]
